FAERS Safety Report 15802956 (Version 3)
Quarter: 2019Q1

REPORT INFORMATION
  Report Type: Spontaneous
  Country: JP (occurrence: JP)
  Receive Date: 20190109
  Receipt Date: 20190123
  Transmission Date: 20190417
  Serious: Yes (Hospitalization)
  Sender: FDA-Public Use
  Company Number: JP-PFIZER INC-2018504224

PATIENT
  Age: 7 Decade
  Sex: Female

DRUGS (1)
  1. LORBRENA [Suspect]
     Active Substance: LORLATINIB
     Indication: LUNG NEOPLASM MALIGNANT
     Dosage: UNK
     Route: 048
     Dates: end: 201812

REACTIONS (5)
  - Blood cholesterol increased [Unknown]
  - Oedema peripheral [Recovering/Resolving]
  - Gait inability [Unknown]
  - Stomatitis [Unknown]
  - Blood triglycerides increased [Unknown]
